FAERS Safety Report 10910818 (Version 1)
Quarter: 2015Q1

REPORT INFORMATION
  Report Type: Report from Study
  Country: US (occurrence: US)
  Receive Date: 20150312
  Receipt Date: 20150312
  Transmission Date: 20150721
  Serious: Yes (Death, Hospitalization)
  Sender: FDA-Public Use
  Company Number: US-EISAI MEDICAL RESEARCH-E7050-00100-CLI-US

PATIENT
  Age: 71 Year
  Sex: Male
  Weight: 65 kg

DRUGS (6)
  1. GOLVATINIB [Suspect]
     Active Substance: GOLVATINIB
     Indication: SMALL INTESTINE CARCINOMA
     Route: 048
     Dates: start: 20130110, end: 20130110
  2. LENVATINIB [Suspect]
     Active Substance: LENVATINIB
     Indication: SMALL INTESTINE CARCINOMA
     Route: 048
     Dates: start: 20130109, end: 20130109
  3. LENVATINIB [Suspect]
     Active Substance: LENVATINIB
     Indication: SMALL INTESTINE CARCINOMA
     Route: 048
     Dates: start: 20130117, end: 20130211
  4. LENVATINIB [Suspect]
     Active Substance: LENVATINIB
     Route: 048
     Dates: start: 20130301, end: 20130412
  5. GOLVATINIB [Suspect]
     Active Substance: GOLVATINIB
     Route: 048
     Dates: start: 20130301, end: 20130412
  6. GOLVATINIB [Suspect]
     Active Substance: GOLVATINIB
     Route: 048
     Dates: start: 20130117, end: 20130211

REACTIONS (1)
  - Diarrhoea [Recovered/Resolved]

NARRATIVE: CASE EVENT DATE: 20130408
